FAERS Safety Report 6903900-3 (Version None)
Quarter: 2010Q3

REPORT INFORMATION
  Report Type: 
  Country: None (occurrence: None)
  Receive Date: 20100804
  Receipt Date: 20090127
  Transmission Date: 20110219
  Serious: No
  Sender: FDA-Public Use
  Company Number: US-PFIZER INC-2008101561

PATIENT
  Sex: Female
  Weight: 90.249 kg

DRUGS (6)
  1. LYRICA [Suspect]
     Indication: FIBROMYALGIA
     Dosage: 75 MG, 2X/DAY
     Route: 048
     Dates: start: 20080101
  2. VOLTAREN [Suspect]
     Indication: INFLAMMATION
     Dosage: 75 MG, 2X/DAY
     Route: 048
     Dates: start: 20080101, end: 20080101
  3. METHOTREXATE [Concomitant]
  4. VERPAMIL [Concomitant]
  5. FOLIC ACID [Concomitant]
  6. KLOR-CON [Concomitant]

REACTIONS (2)
  - ALOPECIA [None]
  - JOINT SWELLING [None]
